FAERS Safety Report 10054378 (Version 2)
Quarter: 2014Q2

REPORT INFORMATION
  Report Type: Spontaneous
  Country: US (occurrence: US)
  Receive Date: 20140402
  Receipt Date: 20140602
  Transmission Date: 20141212
  Serious: No
  Sender: FDA-Public Use
  Company Number: US-AMGEN-USASP2014018957

PATIENT
  Age: 40 Year
  Sex: Female
  Weight: 68.03 kg

DRUGS (1)
  1. ENBREL [Suspect]
     Indication: ECZEMA INFECTED
     Dosage: 50 MG, 2 TIMES/WK
     Route: 065
     Dates: start: 20131210, end: 20140317

REACTIONS (2)
  - Rosacea [Recovered/Resolved]
  - Skin exfoliation [Not Recovered/Not Resolved]
